FAERS Safety Report 7994657-6 (Version None)
Quarter: 2011Q4

REPORT INFORMATION
  Report Type: 
  Country: None (occurrence: None)
  Receive Date: 20111220
  Receipt Date: 20111209
  Transmission Date: 20120403
  Serious: Yes (Hospitalization)
  Sender: FDA-Public Use
  Company Number: CA-JNJFOC-20111205861

PATIENT
  Sex: Female
  Weight: 92.3 kg

DRUGS (7)
  1. IMURAN [Concomitant]
     Route: 048
  2. CALCIUM [Concomitant]
  3. PREDNISONE [Concomitant]
     Route: 048
  4. REMICADE [Suspect]
     Indication: COLITIS ULCERATIVE
     Route: 042
     Dates: start: 20100902
  5. VITAMIN [Concomitant]
  6. REMICADE [Suspect]
     Dosage: 9TH INFUSION
     Route: 042
     Dates: start: 20111006
  7. OTHER THERAPEUTIC PRODUCTS [Concomitant]

REACTIONS (2)
  - GASTROINTESTINAL HAEMORRHAGE [None]
  - DIARRHOEA [None]
